FAERS Safety Report 9322534 (Version 5)
Quarter: 2013Q4

REPORT INFORMATION
  Report Type: Spontaneous
  Country: JP (occurrence: JP)
  Receive Date: 20130531
  Receipt Date: 20131128
  Transmission Date: 20140711
  Serious: Yes (Hospitalization)
  Sender: FDA-Public Use
  Company Number: JP-ASTRAZENECA-2013SE30677

PATIENT
  Age: 70 Year
  Sex: Female
  Weight: 63 kg

DRUGS (6)
  1. CRESTOR [Suspect]
     Indication: DYSLIPIDAEMIA
     Route: 048
     Dates: start: 20120131, end: 20130408
  2. AMLODIPINE [Suspect]
     Indication: HYPERTENSION
     Route: 048
     Dates: start: 20120131, end: 20130408
  3. AGENTS USED FOR COMMON COLD [Suspect]
     Indication: NASOPHARYNGITIS
     Route: 048
  4. AGENTS USED FOR COMMON COLD [Suspect]
     Indication: NASOPHARYNGITIS
     Route: 048
  5. AGENTS USED FOR COMMON COLD [Suspect]
     Indication: NASOPHARYNGITIS
     Dosage: DOSE UNKNOWN
     Route: 048
  6. AGENTS USED FOR COMMON COLD [Suspect]
     Indication: NASOPHARYNGITIS
     Dosage: DOSE UNKNOWN
     Route: 048

REACTIONS (3)
  - Interstitial granulomatous dermatitis [Recovering/Resolving]
  - Oropharyngeal pain [Recovering/Resolving]
  - Temporomandibular joint syndrome [Recovering/Resolving]
